FAERS Safety Report 21822679 (Version 1)
Quarter: 2023Q1

REPORT INFORMATION
  Report Type: Spontaneous
  Country: US (occurrence: None)
  Receive Date: 20230104
  Receipt Date: 20230104
  Transmission Date: 20230417
  Serious: No
  Sender: FDA-Public Use
  Company Number: None

PATIENT
  Age: 68 Year
  Sex: Female
  Weight: 61.2 kg

DRUGS (1)
  1. PAXLOVID [Suspect]
     Active Substance: NIRMATRELVIR\RITONAVIR
     Indication: COVID-19 treatment
     Dates: start: 20221217, end: 20221222

REACTIONS (10)
  - SARS-CoV-2 test negative [None]
  - SARS-CoV-2 test positive [None]
  - COVID-19 [None]
  - Rebound effect [None]
  - Cough [None]
  - Pyrexia [None]
  - Taste disorder [None]
  - Lymphadenopathy [None]
  - Nasal congestion [None]
  - Condition aggravated [None]

NARRATIVE: CASE EVENT DATE: 20221227
